FAERS Safety Report 22051605 (Version 2)
Quarter: 2023Q1

REPORT INFORMATION
  Report Type: Spontaneous
  Country: US (occurrence: US)
  Receive Date: 20230301
  Receipt Date: 20230306
  Transmission Date: 20230417
  Serious: Yes (Disabling, Other)
  Sender: FDA-Public Use
  Company Number: US-SANOFI-01509142

PATIENT
  Age: 92 Year
  Sex: Female

DRUGS (1)
  1. LANTUS SOLOSTAR [Suspect]
     Active Substance: INSULIN GLARGINE
     Indication: Diabetes mellitus
     Dosage: 10 TO 12 UNITS DAILY
     Route: 065

REACTIONS (4)
  - Bedridden [Unknown]
  - Neoplasm malignant [Unknown]
  - Memory impairment [Unknown]
  - Intentional product misuse [Unknown]
